FAERS Safety Report 8184385-9 (Version None)
Quarter: 2012Q1

REPORT INFORMATION
  Report Type: 
  Country: None (occurrence: None)
  Receive Date: 20120305
  Receipt Date: 20120229
  Transmission Date: 20120608
  Serious: Yes (Hospitalization, Other)
  Sender: FDA-Public Use
  Company Number: US-B.I. PHARMACEUTICALS,INC./RIDGEFIELD-2012-BP-00443BP

PATIENT
  Age: 78 Year
  Sex: Female
  Weight: 67.3 kg

DRUGS (1)
  1. PRADAXA [Suspect]
     Indication: ATRIAL FIBRILLATION
     Dosage: 300 MG
     Dates: start: 20100201, end: 20120109

REACTIONS (2)
  - HAEMORRHAGE [None]
  - IRON DEFICIENCY ANAEMIA [None]
